FAERS Safety Report 9142863 (Version 1)
Quarter: 2013Q1

REPORT INFORMATION
  Report Type: Not Available
  Country: US (occurrence: US)
  Receive Date: 20130306
  Receipt Date: 20130306
  Transmission Date: 20140127
  Serious: Yes (Other)
  Sender: FDA-Public Use
  Company Number: US-ENDO PHARMACEUTICALS INC.-OPER20090228

PATIENT
  Sex: Female

DRUGS (1)
  1. OPANA [Suspect]
     Indication: BACK PAIN
     Route: 048
     Dates: start: 20091215

REACTIONS (4)
  - Circulatory collapse [Recovered/Resolved]
  - Unresponsive to stimuli [Recovered/Resolved]
  - Respiratory rate decreased [Recovered/Resolved]
  - Nausea [Not Recovered/Not Resolved]
